FAERS Safety Report 11517549 (Version 2)
Quarter: 2015Q3

REPORT INFORMATION
  Report Type: Spontaneous
  Country: US (occurrence: US)
  Receive Date: 20150917
  Receipt Date: 20150928
  Transmission Date: 20151125
  Serious: No
  Sender: FDA-Public Use
  Company Number: US-TEVA-593166ACC

PATIENT
  Age: 24 Year
  Sex: Female
  Weight: 90.8 kg

DRUGS (1)
  1. PLAN B ONE-STEP [Suspect]
     Active Substance: LEVONORGESTREL
     Indication: POST COITAL CONTRACEPTION
     Route: 048
     Dates: start: 20150907, end: 20150907

REACTIONS (5)
  - Pyrexia [Not Recovered/Not Resolved]
  - Abdominal distension [Recovered/Resolved]
  - Breast pain [Recovered/Resolved]
  - Dysmenorrhoea [Recovered/Resolved]
  - Fatigue [Recovered/Resolved]

NARRATIVE: CASE EVENT DATE: 20150907
